FAERS Safety Report 10234949 (Version 1)
Quarter: 2014Q1

REPORT INFORMATION
  Report Type: Spontaneous
  Country: US (occurrence: None)
  Receive Date: 20140306
  Receipt Date: 20140306
  Transmission Date: 20141002
  Serious: Yes (Disabling, Other)
  Sender: FDA-Public Use
  Company Number: 163-21880-13044326

PATIENT
  Age: 65 Year
  Sex: Male
  Weight: 104.33 kg

DRUGS (5)
  1. REVLIMID ( LENALIDOMIDE) ( 5 MILLIGRAM, CAPSULES) [Suspect]
     Indication: PLASMA CELL MYELOMA
     Dosage: 5 MG, POST DIALYSIS ON MON, WED, AND FRIDAY, PO
     Route: 048
     Dates: start: 201210
  2. ACYCLOVIR ( ACICLOVIR) (UNKNOWN) [Concomitant]
  3. COMBIVENT ( COMBIVENT) (UNKNOWN) [Concomitant]
  4. MULTIVITAMIN ( MULTIVITAMINS) ( UNKNOWN) [Concomitant]
  5. ASPIRIN ( ACETYLSALICYLIC ACID) (UNKNOWN) [Concomitant]

REACTIONS (1)
  - Dyspnoea [None]
